FAERS Safety Report 9116345 (Version 1)
Quarter: 2013Q1

REPORT INFORMATION
  Report Type: Spontaneous
  Country: None (occurrence: US)
  Receive Date: 20130225
  Receipt Date: 20130225
  Transmission Date: 20140127
  Serious: No
  Sender: FDA-Public Use
  Company Number: US-ENDO PHARMACEUTICALS INC.-FORT20110093

PATIENT
  Sex: Male
  Weight: 118.95 kg

DRUGS (3)
  1. FORTESTA [Suspect]
     Indication: BLOOD TESTOSTERONE DECREASED
     Route: 061
     Dates: start: 201107
  2. IRON [Concomitant]
     Indication: BLOOD IRON DECREASED
     Dosage: UNKNOWN
     Route: 048
     Dates: start: 2010
  3. VITAMIN D [Concomitant]
     Indication: VITAMIN D DECREASED
     Dosage: UNKNOWN
     Route: 048
     Dates: start: 201107

REACTIONS (1)
  - Oedema peripheral [Not Recovered/Not Resolved]
